FAERS Safety Report 9528551 (Version 1)
Quarter: 2013Q1

REPORT INFORMATION
  Report Type: Spontaneous
  Country: US (occurrence: None)
  Receive Date: 20130314
  Receipt Date: 20130314
  Transmission Date: 20140127
  Serious: No
  Sender: FDA-Public Use
  Company Number: 1301USA009032

PATIENT
  Age: 44 Year
  Sex: Male

DRUGS (6)
  1. PEGINTRON (PEGINTERFERON ALFA-2B) POWDER FOR INJECTION [Suspect]
     Indication: HEPATITIS C
     Dates: start: 20121031
  2. VICTRELIS (BOCEPREVIR) CAPSULE, 200MG [Suspect]
     Route: 048
  3. RIBAVIRIN (RIBAVIRIN) TABLET, 200 MG [Suspect]
     Indication: HEPATITIS C
     Route: 048
  4. MOTRIN (IBUPROFEN) [Concomitant]
  5. ZYRTEC (CETIRIZINE HYDROCHLORIDE) [Concomitant]
  6. ZOLOFT (SERTRALINE HYDROCHLORIDE) [Concomitant]

REACTIONS (16)
  - Back pain [None]
  - Depression [None]
  - Fatigue [None]
  - Palpitations [None]
  - Oropharyngeal swelling [None]
  - Cheilitis [None]
  - Glossodynia [None]
  - Oral pain [None]
  - Gastrointestinal hypermotility [None]
  - Stomatitis [None]
  - Abdominal pain upper [None]
  - Abdominal discomfort [None]
  - Insomnia [None]
  - Pain [None]
  - Chills [None]
  - Pyrexia [None]
